FAERS Safety Report 12651280 (Version 1)
Quarter: 2016Q3

REPORT INFORMATION
  Report Type: Report from Study
  Country: DE (occurrence: DE)
  Receive Date: 20160815
  Receipt Date: 20160815
  Transmission Date: 20161109
  Serious: Yes (Hospitalization)
  Sender: FDA-Public Use
  Company Number: DE-BIOGEN-2016BI00277475

PATIENT
  Age: 52 Year
  Sex: Female

DRUGS (14)
  1. FAMPYRA [Suspect]
     Active Substance: DALFAMPRIDINE
     Indication: GAIT DISTURBANCE
     Route: 048
     Dates: start: 2013
  2. ESOMEPRAZOLE [Concomitant]
     Active Substance: ESOMEPRAZOLE
     Indication: GASTROOESOPHAGEAL REFLUX DISEASE
     Route: 065
  3. CALCICARE D3 [Concomitant]
     Indication: OSTEOPOROSIS
     Route: 065
     Dates: start: 2012
  4. VIGANTOLETTEN [Concomitant]
     Active Substance: CHOLECALCIFEROL
     Indication: HYPOKALAEMIA
     Route: 065
     Dates: start: 201201
  5. METFORMIN [Concomitant]
     Active Substance: METFORMIN HYDROCHLORIDE
     Indication: DIABETES MELLITUS
     Route: 065
     Dates: start: 2006
  6. HCT DEXCEL [Concomitant]
     Indication: HYPERTENSION
     Route: 065
     Dates: start: 2014
  7. CANDECOR COMP [Concomitant]
     Indication: HYPERTENSION
     Dosage: 8 MG/12.5MG
     Route: 065
     Dates: start: 2009
  8. VENLAFAXINE [Concomitant]
     Active Substance: VENLAFAXINE HYDROCHLORIDE
     Indication: DEPRESSION
     Route: 065
     Dates: start: 2012
  9. SIRDALUD [Concomitant]
     Active Substance: TIZANIDINE
     Indication: MUSCLE SPASTICITY
     Route: 065
     Dates: start: 201601
  10. TECFIDERA [Suspect]
     Active Substance: DIMETHYL FUMARATE
     Indication: MULTIPLE SCLEROSIS
     Route: 048
     Dates: start: 20151102
  11. ACTRAPID [Concomitant]
     Active Substance: INSULIN HUMAN
     Indication: ASTHMA
     Dosage: TID, AS REQUIRED
     Route: 065
     Dates: start: 201511
  12. FORMATRIS [Concomitant]
     Active Substance: FORMOTEROL FUMARATE
     Indication: ASTHMA
     Dosage: 1 HUB, DOSIERAEROSOL
     Route: 055
  13. NOVOPULMON [Concomitant]
     Active Substance: BUDESONIDE
     Indication: ASTHMA
     Dosage: 400, 1 HUB, DOSIERAEROSOL
     Route: 055
  14. LEVEMIR [Concomitant]
     Active Substance: INSULIN DETEMIR
     Indication: DIABETES MELLITUS
     Dosage: AT NIGHT
     Route: 065
     Dates: start: 201511

REACTIONS (2)
  - Gait disturbance [Not Recovered/Not Resolved]
  - Diarrhoea [Recovered/Resolved]

NARRATIVE: CASE EVENT DATE: 201605
